FAERS Safety Report 8416416 (Version 4)
Quarter: 2013Q3

REPORT INFORMATION
  Report Type: Spontaneous
  Country: BR (occurrence: BR)
  Receive Date: 20120220
  Receipt Date: 20130715
  Transmission Date: 20140515
  Serious: Yes (Other)
  Sender: FDA-Public Use
  Company Number: BR-AMGEN-BRASP2012009341

PATIENT
  Age: 44 Year
  Sex: Female
  Weight: 74 kg

DRUGS (12)
  1. ENBREL [Suspect]
     Indication: RHEUMATOID ARTHRITIS
     Dosage: 25 MG, 2X/WEEK
     Route: 058
     Dates: start: 2011
  2. ENBREL [Suspect]
     Dosage: 25 MG, 2X/WEEK
     Route: 058
     Dates: end: 2012
  3. ENBREL [Suspect]
     Dosage: 50 MG WEEKLY
     Route: 058
     Dates: start: 201111, end: 2012
  4. ENBREL [Suspect]
     Dosage: 50 MG, WEEKLY
     Route: 058
     Dates: start: 201301
  5. MELOXICAM [Suspect]
     Dosage: UNK
  6. FERROUS SULFATE [Concomitant]
     Dosage: UNK
  7. CHLOROQUINE SULFATE [Concomitant]
     Dosage: 125 MG, UNK
  8. FAMOTIDINE [Concomitant]
     Dosage: UNK
  9. TENOXICAM [Concomitant]
     Dosage: UNK
  10. FOLIC ACID [Concomitant]
     Dosage: UNK
  11. PREDNISONE [Concomitant]
     Dosage: UNK
  12. ACETAMINOPHEN [Concomitant]
     Dosage: UNK MG, UNK

REACTIONS (5)
  - Bedridden [Unknown]
  - Pain [Unknown]
  - Crying [Unknown]
  - Injection site discomfort [Unknown]
  - Injection site pain [Unknown]
